FAERS Safety Report 20852528 (Version 1)
Quarter: 2022Q2

REPORT INFORMATION
  Report Type: Spontaneous
  Country: ES (occurrence: ES)
  Receive Date: 20220520
  Receipt Date: 20220520
  Transmission Date: 20220721
  Serious: Yes (Hospitalization)
  Sender: FDA-Public Use
  Company Number: ES-AEMPS-1183034

PATIENT
  Age: 86 Year
  Sex: Male

DRUGS (11)
  1. TRAMADOL [Suspect]
     Active Substance: TRAMADOL
     Indication: Osteoarthritis
     Dosage: UNK (37.5 MG C/8 HORAS)
     Route: 048
     Dates: start: 20201213, end: 20201215
  2. RANEXA [Concomitant]
     Active Substance: RANOLAZINE
     Indication: Cardiovascular disorder
     Dosage: UNK (750.0 MG C/12 H)
     Route: 048
     Dates: start: 20200710
  3. ISOSORBIDE MONONITRATE [Concomitant]
     Active Substance: ISOSORBIDE MONONITRATE
     Indication: Cardiovascular disorder
     Dosage: UNK (40.0MG DECO)
     Route: 048
     Dates: start: 20200710
  4. BECLOMETHASONE DIPROPIONATE\FORMOTEROL FUMARATE [Concomitant]
     Active Substance: BECLOMETHASONE DIPROPIONATE\FORMOTEROL FUMARATE
     Indication: Bronchitis chronic
     Dosage: UNK (2.0 PUFF C/12 H)
     Route: 050
     Dates: start: 20180430
  5. OMEPRAZOLE [Concomitant]
     Active Substance: OMEPRAZOLE
     Indication: Gastrooesophageal reflux disease
     Dosage: UNK (20.0 MG A-DE)
     Route: 048
     Dates: start: 20191210
  6. CETIRIZINE [Concomitant]
     Active Substance: CETIRIZINE HYDROCHLORIDE
     Indication: Pharyngitis
     Dosage: UNK (10.0 MG DECE)
     Route: 048
     Dates: start: 20180806
  7. TAMSULOSIN [Concomitant]
     Active Substance: TAMSULOSIN
     Indication: Benign prostatic hyperplasia
     Dosage: UNK (0.4 MG DE)
     Route: 048
     Dates: start: 20180307
  8. BUDESONIDE [Concomitant]
     Active Substance: BUDESONIDE
     Indication: Rhinitis
     Dosage: UNK (200.0 MCG C/24 H)
     Route: 045
     Dates: start: 20200912
  9. PARACETAMOL KERN PHARMA [Concomitant]
     Indication: Osteoarthritis
     Dosage: UNK (1.0 G DECE)
     Route: 048
     Dates: start: 20170531
  10. Trinomia [Concomitant]
     Indication: Cardiovascular disorder
     Dosage: UNK (1.0 CAPS DE)
     Route: 048
     Dates: start: 20150626
  11. SPIRIVA RESPIMAT [Concomitant]
     Active Substance: TIOTROPIUM BROMIDE
     Indication: Bronchitis chronic
     Dosage: UNK (2.0 PUFF C/24 H)
     Route: 050
     Dates: start: 20200117

REACTIONS (1)
  - Disorientation [Recovered/Resolved]

NARRATIVE: CASE EVENT DATE: 20201215
